FAERS Safety Report 12202001 (Version 5)
Quarter: 2016Q2

REPORT INFORMATION
  Report Type: Report from Study
  Country: JP (occurrence: JP)
  Receive Date: 20160322
  Receipt Date: 20160630
  Transmission Date: 20160815
  Serious: Yes (Other)
  Sender: FDA-Public Use
  Company Number: JP-AMGEN-JPNCT2016034838

PATIENT
  Age: 62 Year
  Sex: Male

DRUGS (27)
  1. 3.5 ML PERSONAL INJECTOR [Suspect]
     Active Substance: DEVICE
     Indication: DYSLIPIDAEMIA
  2. FAMOTIDINE. [Concomitant]
     Active Substance: FAMOTIDINE
     Dosage: 20 MG, QD
     Route: 048
     Dates: start: 20130726, end: 20160407
  3. PRIMPERAN [Concomitant]
     Active Substance: METOCLOPRAMIDE HYDROCHLORIDE
     Dosage: 5 MG, TID
     Route: 048
     Dates: start: 20160512
  4. AMG 145 [Suspect]
     Active Substance: EVOLOCUMAB
     Indication: HYPERLIPIDAEMIA
     Dosage: 7.5 MG, QMO
     Route: 058
     Dates: start: 20140404, end: 20160302
  5. CROMOFERON [Concomitant]
     Dosage: 1 GTT, QD
     Route: 047
     Dates: start: 20160302
  6. REBAMIPIDE [Concomitant]
     Active Substance: REBAMIPIDE
     Dosage: 100 MG, TID
     Route: 048
     Dates: start: 20160201
  7. OXYCONTIN [Concomitant]
     Active Substance: OXYCODONE HYDROCHLORIDE
     Dosage: 5-40 MG
     Route: 048
     Dates: start: 20160307, end: 20160601
  8. CELECOX [Concomitant]
     Active Substance: CELECOXIB
     Dosage: 100 MG, BID
     Route: 048
     Dates: start: 20160602
  9. PREFILLED AUTOINJECTOR/PEN [Suspect]
     Active Substance: DEVICE
     Indication: DYSLIPIDAEMIA
  10. PLAVIX [Concomitant]
     Active Substance: CLOPIDOGREL BISULFATE
     Dosage: 75 MG, QD
     Route: 048
     Dates: start: 20151221
  11. DEXART [Concomitant]
     Active Substance: DEXAMETHASONE SODIUM PHOSPHATE
     Dosage: 6.6 MG, UNK
     Route: 042
     Dates: start: 20160310
  12. PITAVASTATIN [Concomitant]
     Active Substance: PITAVASTATIN
     Dosage: 1 MG, QD
     Route: 048
     Dates: start: 20140404, end: 20160623
  13. ALLELOCK [Concomitant]
     Active Substance: OLOPATADINE HYDROCHLORIDE
     Dosage: 5 MG, AS NECESSARY
     Route: 048
     Dates: start: 20140520
  14. NEXIUM [Concomitant]
     Active Substance: ESOMEPRAZOLE MAGNESIUM
     Dosage: 20 MG, QD
     Route: 048
     Dates: start: 20160329
  15. OXYCODONE [Concomitant]
     Active Substance: OXYCODONE
     Dosage: 10-40 MG
     Route: 048
     Dates: start: 20160602
  16. LOXOPROFEN [Concomitant]
     Active Substance: LOXOPROFEN
     Dosage: 60 MG, UNK
     Route: 048
     Dates: start: 20160201, end: 20160601
  17. MAGMITT [Concomitant]
     Active Substance: MAGNESIUM OXIDE
     Dosage: 330-500 MG, TID
     Route: 048
     Dates: start: 20160310
  18. AMG 145 [Suspect]
     Active Substance: EVOLOCUMAB
     Indication: DYSLIPIDAEMIA
  19. PREFILLED AUTOINJECTOR/PEN [Suspect]
     Active Substance: DEVICE
     Indication: HYPERLIPIDAEMIA
     Dosage: UNK
     Route: 058
     Dates: start: 20140404, end: 20140822
  20. 3.5 ML PERSONAL INJECTOR [Suspect]
     Active Substance: DEVICE
     Indication: HYPERLIPIDAEMIA
     Dosage: UNK
     Route: 058
     Dates: start: 20140919, end: 20160302
  21. BLOPRESS [Concomitant]
     Active Substance: CANDESARTAN CILEXETIL
     Dosage: 8 MG, QD
     Route: 048
     Dates: start: 20100204, end: 20160608
  22. TRAMAL [Concomitant]
     Active Substance: TRAMADOL
     Dosage: 25 MG, TID
     Route: 048
     Dates: start: 20160229, end: 20160306
  23. DICLOFENAC SODIUM. [Concomitant]
     Active Substance: DICLOFENAC SODIUM
     Dosage: 37.5 MG, QD
     Route: 048
     Dates: start: 20160305, end: 20160601
  24. JUZENTAIHOTO [Concomitant]
     Dosage: 2.5 MG, TID
     Route: 048
     Dates: start: 20160602
  25. SITAGLIPTIN PHOSPHATE MONOHYDRATE [Concomitant]
     Dosage: 50 MG, UNK
     Route: 048
  26. OXINORM [Concomitant]
     Active Substance: OXYCODONE HYDROCHLORIDE
     Dosage: 2.5-5 MG, AS NECESSARY
     Route: 048
  27. ZOLEDRONIC ACID [Concomitant]
     Active Substance: ZOLEDRONIC ACID
     Dosage: 4 MG, QMO
     Route: 042
     Dates: start: 20160420

REACTIONS (1)
  - Pancreatic carcinoma metastatic [Not Recovered/Not Resolved]

NARRATIVE: CASE EVENT DATE: 20160310
